FAERS Safety Report 11703257 (Version 2)
Quarter: 2015Q4

REPORT INFORMATION
  Report Type: Spontaneous
  Country: US (occurrence: US)
  Receive Date: 20151105
  Receipt Date: 20151215
  Transmission Date: 20160304
  Serious: No
  Sender: FDA-Public Use
  Company Number: US-GLAXOSMITHKLINE-US2015GSK158567

PATIENT
  Age: 55 Year

DRUGS (1)
  1. VENTOLIN HFA [Suspect]
     Active Substance: ALBUTEROL SULFATE
     Indication: PRODUCT USED FOR UNKNOWN INDICATION

REACTIONS (7)
  - Hair injury [Unknown]
  - Device breakage [Unknown]
  - Device physical property issue [Unknown]
  - Stress [Unknown]
  - Product quality issue [Unknown]
  - Fear [Unknown]
  - Thermal burn [Unknown]
